FAERS Safety Report 5763928-6 (Version None)
Quarter: 2008Q2

REPORT INFORMATION
  Report Type: 
  Country: None (occurrence: None)
  Receive Date: 20080606
  Receipt Date: 20080606
  Transmission Date: 20081010
  Serious: Yes (Life-Threatening, Hospitalization, Other)
  Sender: FDA-Public Use
  Company Number: None

PATIENT
  Age: 66 Year
  Sex: Male
  Weight: 73.0291 kg

DRUGS (2)
  1. PARCOPA [Suspect]
     Indication: PARKINSONISM
     Dosage: 1 4 TIMES DAILY PO
     Route: 048
     Dates: start: 20080512, end: 20080525
  2. BACTRIM DS [Suspect]
     Indication: IMMUNODEFICIENCY
     Dosage: 1 DAILY PO
     Route: 048
     Dates: start: 20060104, end: 20080602

REACTIONS (3)
  - BONE MARROW FAILURE [None]
  - HEAD INJURY [None]
  - SYNCOPE [None]
